FAERS Safety Report 8457622 (Version 4)
Quarter: 2012Q4

REPORT INFORMATION
  Report Type: 
  Country: JP (occurrence: JP)
  Receive Date: 20120314
  Receipt Date: 20121026
  Transmission Date: 20130627
  Serious: Yes (Other)
  Sender: FDA-Public Use
  Company Number: JP-SANOFI-AVENTIS-2012SA000766

PATIENT
  Age: 65 Year
  Sex: Male
  Weight: 52.8 kg

DRUGS (25)
  1. LASIX [Suspect]
     Indication: PREVENTION
     Route: 042
     Dates: start: 20110623, end: 20110623
  2. LASIX [Suspect]
     Indication: PREVENTION
     Route: 042
     Dates: start: 20110624, end: 20110625
  3. LASIX [Suspect]
     Indication: PREVENTION
     Route: 042
     Dates: start: 20110626, end: 20110626
  4. LASIX [Suspect]
     Indication: PREVENTION
     Route: 042
     Dates: start: 20110626, end: 20110626
  5. LASIX [Suspect]
     Indication: PREVENTION
     Route: 042
     Dates: start: 20110627, end: 20110627
  6. RASBURICASE [Suspect]
     Indication: HYPERURICEMIA
     Route: 042
     Dates: start: 20110623, end: 20110627
  7. SOLU-CORTEF [Concomitant]
     Indication: PROPHYLAXIS
     Route: 042
     Dates: start: 20110626, end: 20110626
  8. SOLU-CORTEF [Concomitant]
     Indication: PROPHYLAXIS
     Route: 042
     Dates: start: 20110624, end: 20110624
  9. POLARAMINE [Concomitant]
     Indication: PROPHYLAXIS
     Route: 042
     Dates: start: 20110626, end: 20110626
  10. POLARAMINE [Concomitant]
     Indication: PROPHYLAXIS
     Route: 042
     Dates: start: 20110624, end: 20110624
  11. ITRACONAZOLE [Concomitant]
     Indication: PREVENTION
     Dosage: Itrizole 1% solution 20ml Dose:20 milligram(s)/millilitre
     Route: 048
     Dates: start: 20110623
  12. CRAVIT [Concomitant]
     Route: 048
     Dates: start: 20110623, end: 20110624
  13. FLUTIDE DISKUS [Concomitant]
  14. ALL OTHER THERAPEUTIC PRODUCTS [Concomitant]
     Indication: BACK PAIN
     Route: 048
  15. THEOLONG [Concomitant]
     Route: 042
  16. PLATELETS, HUMAN BLOOD [Concomitant]
     Dosage: Dose:10 unit(s)
     Route: 042
  17. RED BLOOD CELLS, CONCENTRATED [Concomitant]
     Dosage: Dose:2 unit(s)
     Route: 042
     Dates: end: 20110623
  18. RED BLOOD CELLS, CONCENTRATED [Concomitant]
     Dosage: Dose:2 unit(s)
     Route: 042
     Dates: start: 20110626, end: 20110627
  19. AMINOACETIC ACID/PROLINE [Concomitant]
     Route: 048
     Dates: start: 20110622, end: 20110628
  20. KYTRIL [Concomitant]
     Indication: PREVENTION
     Route: 042
     Dates: start: 20110623, end: 20110626
  21. OMEPRAL [Concomitant]
     Indication: PREVENTION
     Route: 042
     Dates: start: 20110603
  22. ACLACINON [Concomitant]
     Indication: ACUTE MYELOID LEUKAEMIA
     Route: 042
     Dates: start: 20110623, end: 20110626
  23. ACLACINON [Concomitant]
     Indication: ACUTE MYELOID LEUKAEMIA
     Route: 042
     Dates: start: 20110801, end: 20110804
  24. CYLOCIDE [Concomitant]
     Indication: ACUTE MYELOID LEUKAEMIA
     Route: 042
     Dates: start: 20110623, end: 20110713
  25. CYLOCIDE [Concomitant]
     Indication: ACUTE MYELOID LEUKAEMIA
     Route: 042
     Dates: start: 20110801, end: 20110814

REACTIONS (4)
  - Atypical mycobacterial infection [Recovered/Resolved]
  - Pneumonia [Recovered/Resolved]
  - Oedema [Recovered/Resolved]
  - Blood calcium decreased [Recovered/Resolved]
